FAERS Safety Report 7164095-7 (Version None)
Quarter: 2010Q4

REPORT INFORMATION
  Report Type: 
  Country: None (occurrence: None)
  Receive Date: 20101215
  Receipt Date: 20101202
  Transmission Date: 20110411
  Serious: Yes (Death)
  Sender: FDA-Public Use
  Company Number: JP-ACTELION-A-CH2010-42238

PATIENT
  Age: 6 Month
  Sex: Female

DRUGS (3)
  1. TRACLEER [Suspect]
     Indication: PULMONARY ARTERIAL HYPERTENSION
     Dosage: 2 MG/KG, QD
     Route: 048
     Dates: start: 20100415, end: 20101102
  2. SILDENAFIL CITRATE [Concomitant]
  3. OXYGEN [Concomitant]

REACTIONS (1)
  - RESPIRATORY FAILURE [None]
